FAERS Safety Report 25227474 (Version 2)
Quarter: 2025Q2

REPORT INFORMATION
  Report Type: Spontaneous
  Country: AT (occurrence: AT)
  Receive Date: 20250422
  Receipt Date: 20250515
  Transmission Date: 20250717
  Serious: Yes (Hospitalization)
  Sender: IPSEN BIOPHARMACEUTICALS, INC.
  Company Number: AT-SERVIER-S25004670

PATIENT
  Age: 58 Year
  Sex: Female
  Weight: 75 kg

DRUGS (12)
  1. ONIVYDE [Suspect]
     Active Substance: IRINOTECAN HYDROCHLORIDE
     Indication: Pancreatic carcinoma metastatic
     Dosage: 50 MG/M2, EVERY 2 WEEKS
     Route: 042
     Dates: start: 202405, end: 202407
  2. ONIVYDE [Suspect]
     Active Substance: IRINOTECAN HYDROCHLORIDE
     Dosage: 50 MG/M2, EVERY 2 WEEKS
     Route: 042
     Dates: start: 202408
  3. OXALIPLATIN [Concomitant]
     Active Substance: OXALIPLATIN
     Indication: Pancreatic carcinoma metastatic
     Dosage: 60 MG/M2, EVERY 2 WEEKS
     Route: 042
     Dates: start: 202405, end: 202407
  4. OXALIPLATIN [Concomitant]
     Active Substance: OXALIPLATIN
     Dosage: 60 MG/M2, EVERY 2 WEEKS
     Route: 042
     Dates: start: 202408
  5. ELIQUIS [Concomitant]
     Active Substance: APIXABAN
     Indication: Thrombosis prophylaxis
     Dosage: 2.5 MG, QD
     Route: 048
     Dates: start: 202405
  6. LOPERAMIDE HYDROCHLORIDE [Concomitant]
     Active Substance: LOPERAMIDE HYDROCHLORIDE
     Indication: Diarrhoea
     Route: 048
     Dates: start: 202405
  7. FLUOROURACIL [Concomitant]
     Active Substance: FLUOROURACIL
     Indication: Pancreatic carcinoma metastatic
     Dosage: 2400 MG/M2, EVERY 2 WEEKS
     Route: 042
     Dates: start: 202405, end: 202407
  8. FLUOROURACIL [Concomitant]
     Active Substance: FLUOROURACIL
     Dosage: 2400 MG/M2, EVERY 2 WEEKS
     Route: 042
     Dates: start: 202408
  9. LEUCOVORIN [Concomitant]
     Active Substance: LEUCOVORIN\LEUCOVORIN CALCIUM
     Indication: Pancreatic carcinoma metastatic
     Dosage: 400 MG/M2, EVERY 2 WEEKS
     Route: 042
     Dates: start: 202405, end: 202407
  10. LEUCOVORIN [Concomitant]
     Active Substance: LEUCOVORIN\LEUCOVORIN CALCIUM
     Dosage: 400 MG/M2, EVERY 2 WEEKS
     Route: 042
     Dates: start: 202408
  11. NOVALGIN [Concomitant]
     Indication: Back pain
     Route: 048
  12. PASPERTIN [Concomitant]
     Indication: Nausea
     Route: 048
     Dates: start: 202405

REACTIONS (8)
  - Cholangitis [Recovered/Resolved]
  - Streptococcal bacteraemia [Recovered/Resolved]
  - Fatigue [Recovered/Resolved]
  - Hypertension [Recovered/Resolved]
  - Diarrhoea [Recovered/Resolved]
  - Diarrhoea [Recovered/Resolved]
  - Diarrhoea [Recovered/Resolved]
  - Product use issue [Recovered/Resolved]

NARRATIVE: CASE EVENT DATE: 20240701
